FAERS Safety Report 19095512 (Version 1)
Quarter: 2021Q2

REPORT INFORMATION
  Report Type: Spontaneous
  Country: US (occurrence: US)
  Receive Date: 20210406
  Receipt Date: 20210406
  Transmission Date: 20210717
  Serious: No
  Sender: FDA-Public Use
  Company Number: US-TEVA-2021-US-1894585

PATIENT
  Age: 77 Year
  Sex: Female
  Weight: 143.15 kg

DRUGS (18)
  1. OMEPRAZOLE 20 MG CAPSULE DR [Concomitant]
  2. ATORVASTATIN CALCIUM 10 MG TABLET [Concomitant]
  3. FERROUS SULFATE 325(65) MG TABLET [Concomitant]
  4. CALCIUM 600 MG TABLET [Concomitant]
  5. AUSTEDO [Suspect]
     Active Substance: DEUTETRABENAZINE
     Dosage: 48 MILLIGRAM DAILY;
     Route: 048
     Dates: start: 202102
  6. FAMCICLOVIR 125 MG TABLET [Concomitant]
  7. ASPIRIN 81 MG TAB CHEW [Concomitant]
  8. POTASSIUM CHLORIDE. [Concomitant]
     Active Substance: POTASSIUM CHLORIDE
  9. HYDROCHLOROTHIAZIDE 25 MG TABLET [Concomitant]
  10. CALCITRIOL 0.25 MCG CAPSULE [Concomitant]
  11. ELIQUIS [Concomitant]
     Active Substance: APIXABAN
  12. LEFLUNOMIDE 10 MG TABLET [Concomitant]
     Active Substance: LEFLUNOMIDE
  13. GABAPENTIN 400 MG CAPSULE [Concomitant]
  14. IBUPROFEN 800 MG TABLET [Concomitant]
     Active Substance: IBUPROFEN
  15. TORSEMIDE 20 MG TABLET [Concomitant]
  16. HYDRALAZINE HCL 100 MG TABLET [Concomitant]
  17. HYDROXYCHLOROQUINE SULFATE. [Concomitant]
     Active Substance: HYDROXYCHLOROQUINE SULFATE
  18. CLONIDINE HCL 0.1 MG TABLET [Concomitant]
     Active Substance: CLONIDINE HYDROCHLORIDE

REACTIONS (2)
  - Product dose omission issue [Unknown]
  - Drug ineffective [Unknown]

NARRATIVE: CASE EVENT DATE: 202102
